FAERS Safety Report 9099822 (Version 2)
Quarter: 2013Q1

REPORT INFORMATION
  Report Type: Spontaneous
  Country: CA (occurrence: CA)
  Receive Date: 20130215
  Receipt Date: 20130225
  Transmission Date: 20140127
  Serious: Yes (Death, Other)
  Sender: FDA-Public Use
  Company Number: PHHY2012CA074289

PATIENT
  Sex: Male

DRUGS (1)
  1. ZOMETA [Suspect]
     Indication: RENAL CELL CARCINOMA
     Dosage: 3.3 MG, EVERY 2 MONTHS
     Route: 042
     Dates: start: 20120619, end: 20121213

REACTIONS (6)
  - Death [Fatal]
  - Urinary retention [Unknown]
  - Decreased appetite [Unknown]
  - Body temperature increased [Unknown]
  - Back pain [Unknown]
  - Asthenia [Unknown]
